FAERS Safety Report 10375593 (Version 2)
Quarter: 2016Q1

REPORT INFORMATION
  Report Type: Spontaneous
  Country: US (occurrence: US)
  Receive Date: 20140811
  Receipt Date: 20160223
  Transmission Date: 20160525
  Serious: No
  Sender: FDA-Public Use
  Company Number: US-GLAXOSMITHKLINE-A1039894A

PATIENT
  Sex: Male

DRUGS (1)
  1. REQUIP XL [Suspect]
     Active Substance: ROPINIROLE HYDROCHLORIDE
     Indication: RESTLESS LEGS SYNDROME
     Dosage: 2 MG TABLETS
     Route: 065
     Dates: start: 201203

REACTIONS (2)
  - Drug administration error [Not Recovered/Not Resolved]
  - Fatigue [Not Recovered/Not Resolved]
